FAERS Safety Report 10742832 (Version 1)
Quarter: 2015Q1

REPORT INFORMATION
  Report Type: Spontaneous
  Country: IR (occurrence: IR)
  Receive Date: 20150127
  Receipt Date: 20150127
  Transmission Date: 20150721
  Serious: Yes (Death)
  Sender: FDA-Public Use
  Company Number: IR-ABBVIE-15P-080-1337943-00

PATIENT
  Age: 2 Day

DRUGS (1)
  1. SURVANTA [Suspect]
     Active Substance: BERACTANT
     Indication: ACUTE RESPIRATORY DISTRESS SYNDROME
     Dosage: UNKNOWN
     Route: 050

REACTIONS (1)
  - Pulmonary haemorrhage [Fatal]
